FAERS Safety Report 24695513 (Version 1)
Quarter: 2024Q4

REPORT INFORMATION
  Report Type: Spontaneous
  Country: CN (occurrence: CN)
  Receive Date: 20241204
  Receipt Date: 20241204
  Transmission Date: 20250115
  Serious: Yes (Other)
  Sender: ALKEM
  Company Number: CN-ALKEM LABORATORIES LIMITED-CN-ALKEM-2024-00690

PATIENT
  Age: 33 Year
  Sex: Female

DRUGS (8)
  1. MYCOPHENOLATE MOFETIL [Suspect]
     Active Substance: MYCOPHENOLATE MOFETIL
     Indication: Immunomodulatory therapy
     Dosage: 1 GRAM, QD
     Route: 065
  2. MYCOPHENOLATE MOFETIL [Suspect]
     Active Substance: MYCOPHENOLATE MOFETIL
     Indication: Multiple sclerosis
  3. MYCOPHENOLATE MOFETIL [Suspect]
     Active Substance: MYCOPHENOLATE MOFETIL
     Indication: Anti-NMDA antibody
  4. MYCOPHENOLATE MOFETIL [Suspect]
     Active Substance: MYCOPHENOLATE MOFETIL
     Indication: Encephalitis autoimmune
  5. TERIFLUNOMIDE [Suspect]
     Active Substance: TERIFLUNOMIDE
     Indication: Immunomodulatory therapy
     Dosage: UNK
     Route: 065
  6. TERIFLUNOMIDE [Suspect]
     Active Substance: TERIFLUNOMIDE
     Indication: Multiple sclerosis
  7. TERIFLUNOMIDE [Suspect]
     Active Substance: TERIFLUNOMIDE
     Indication: Anti-NMDA antibody
  8. TERIFLUNOMIDE [Suspect]
     Active Substance: TERIFLUNOMIDE
     Indication: Encephalitis autoimmune

REACTIONS (2)
  - Multiple sclerosis relapse [Recovering/Resolving]
  - Condition aggravated [Recovering/Resolving]
